FAERS Safety Report 14433410 (Version 1)
Quarter: 2018Q1

REPORT INFORMATION
  Report Type: Spontaneous
  Country: US (occurrence: US)
  Receive Date: 20180124
  Receipt Date: 20180124
  Transmission Date: 20180509
  Serious: No
  Sender: FDA-Public Use
  Company Number: US-PCCINC-T201700749

PATIENT

DRUGS (28)
  1. CHLORASEPTIC SORE THROAT           /00280701/ [Concomitant]
  2. CYANOCOBALAMIN. [Concomitant]
     Active Substance: CYANOCOBALAMIN
  3. COMBIVENT RESPIMAT [Concomitant]
     Active Substance: ALBUTEROL SULFATE\IPRATROPIUM BROMIDE
  4. SINGULAIR [Concomitant]
     Active Substance: MONTELUKAST SODIUM
  5. SODIUM CHLORIDE. [Concomitant]
     Active Substance: SODIUM CHLORIDE
  6. GABLOFEN [Suspect]
     Active Substance: BACLOFEN
     Dosage: 464.5 ?G, QD
     Route: 037
  7. ALBUTEROL. [Concomitant]
     Active Substance: ALBUTEROL
     Indication: MUSCLE SPASTICITY
  8. EPINEPHRINE. [Concomitant]
     Active Substance: EPINEPHRINE
  9. LIDOCAINE. [Concomitant]
     Active Substance: LIDOCAINE
  10. MOBIC [Concomitant]
     Active Substance: MELOXICAM
  11. PROTONIX                           /00661201/ [Concomitant]
     Active Substance: OMEPRAZOLE
  12. ACETAMINOPHEN AND CODEINE [Concomitant]
     Active Substance: ACETAMINOPHEN\CODEINE PHOSPHATE
  13. DOCUSATE SODIUM. [Concomitant]
     Active Substance: DOCUSATE SODIUM
  14. LEVOTHYROXINE. [Concomitant]
     Active Substance: LEVOTHYROXINE
  15. TOBRADEX [Concomitant]
     Active Substance: DEXAMETHASONE\TOBRAMYCIN
  16. CARBATROL [Concomitant]
     Active Substance: CARBAMAZEPINE
  17. DICYCLOMINE [Concomitant]
     Active Substance: DICYCLOMINE HYDROCHLORIDE
  18. FLUTICASONE. [Concomitant]
     Active Substance: FLUTICASONE
  19. KEPPRA [Concomitant]
     Active Substance: LEVETIRACETAM
  20. ZOFRAN [Concomitant]
     Active Substance: ONDANSETRON HYDROCHLORIDE
  21. CLOTRIMAZOLE. [Concomitant]
     Active Substance: CLOTRIMAZOLE
  22. AMERGE [Concomitant]
     Active Substance: NARATRIPTAN HYDROCHLORIDE
  23. MINIPRES [Concomitant]
     Active Substance: PRAZOSIN HYDROCHLORIDE
  24. OCUVITE [Concomitant]
     Active Substance: VITAMINS
  25. LOTRIMIN [Concomitant]
     Active Substance: CLOTRIMAZOLE
  26. TOPAMAX [Concomitant]
     Active Substance: TOPIRAMATE
  27. DULOXETINE. [Concomitant]
     Active Substance: DULOXETINE
  28. ANTIVERT [Concomitant]
     Active Substance: MECLIZINE HYDROCHLORIDE

REACTIONS (6)
  - Muscle spasticity [Unknown]
  - Dizziness [Unknown]
  - Pain [Unknown]
  - Implant site warmth [Unknown]
  - Implant site papules [Unknown]
  - Nausea [Unknown]

NARRATIVE: CASE EVENT DATE: 20161022
